FAERS Safety Report 5610642-3 (Version None)
Quarter: 2008Q1

REPORT INFORMATION
  Report Type: 
  Country: None (occurrence: None)
  Receive Date: 20080201
  Receipt Date: 20071024
  Transmission Date: 20080703
  Serious: No
  Sender: FDA-Public Use
  Company Number: US-BAYER-US-2007-040643

PATIENT
  Age: 30 Year

DRUGS (2)
  1. MIRENA [Suspect]
     Indication: CONTRACEPTION
     Route: 015
     Dates: start: 20050201
  2. IMITREX [Concomitant]
     Indication: MIGRAINE

REACTIONS (3)
  - BREAST TENDERNESS [None]
  - DYSPEPSIA [None]
  - SOMATOFORM DISORDER PREGNANCY [None]
